FAERS Safety Report 17110506 (Version 1)
Quarter: 2019Q4

REPORT INFORMATION
  Report Type: Spontaneous
  Country: AT (occurrence: AT)
  Receive Date: 20191204
  Receipt Date: 20191204
  Transmission Date: 20200122
  Serious: No
  Sender: FDA-Public Use
  Company Number: AT-BEH-2019110128

PATIENT
  Age: 4 Year
  Sex: Male

DRUGS (2)
  1. HIZENTRA [Suspect]
     Active Substance: HUMAN IMMUNOGLOBULIN G
     Indication: COMBINED IMMUNODEFICIENCY
  2. HIZENTRA [Suspect]
     Active Substance: HUMAN IMMUNOGLOBULIN G
     Indication: ALLOGENIC STEM CELL TRANSPLANTATION
     Dosage: 8 MILLILITER EVERY EIGHT TO TEN DAYS, FOR A FEW WEEKS AT WEEKLY INTERVALS
     Route: 065
     Dates: start: 201903

REACTIONS (3)
  - Injection site rash [Unknown]
  - Rash [Unknown]
  - Eczema [Unknown]
